FAERS Safety Report 4941305-5 (Version None)
Quarter: 2006Q1

REPORT INFORMATION
  Report Type: 
  Country: None (occurrence: None)
  Receive Date: 20060313
  Receipt Date: 20050829
  Transmission Date: 20060701
  Serious: Yes (Hospitalization, Disabling)
  Sender: FDA-Public Use
  Company Number: US-MERCK-0508USA05082

PATIENT
  Age: 54 Year
  Sex: Female
  Weight: 120 kg

DRUGS (8)
  1. VIOXX [Suspect]
     Indication: OSTEOARTHRITIS
     Route: 048
     Dates: start: 19990820, end: 20010906
  2. VIOXX [Suspect]
     Route: 048
     Dates: end: 20030909
  3. VIOXX [Suspect]
     Route: 048
     Dates: start: 20030923
  4. VIOXX [Suspect]
     Route: 048
     Dates: start: 20031208, end: 20041001
  5. VIOXX [Suspect]
     Route: 048
     Dates: start: 19990820, end: 20010906
  6. VIOXX [Suspect]
     Route: 048
     Dates: end: 20030909
  7. VIOXX [Suspect]
     Route: 048
     Dates: start: 20030923
  8. VIOXX [Suspect]
     Route: 048
     Dates: start: 20031208, end: 20041001

REACTIONS (33)
  - ANXIETY [None]
  - ARTERIOSCLEROSIS CORONARY ARTERY [None]
  - ARTHRALGIA [None]
  - ARTHROPATHY [None]
  - BACK PAIN [None]
  - CHEST DISCOMFORT [None]
  - CHEST PAIN [None]
  - CONTUSION [None]
  - DEPRESSION [None]
  - DIABETES MELLITUS [None]
  - FALL [None]
  - FATIGUE [None]
  - FLANK PAIN [None]
  - GLUCOSE TOLERANCE IMPAIRED [None]
  - HYPERLIPIDAEMIA [None]
  - INCREASED TENDENCY TO BRUISE [None]
  - INTERVERTEBRAL DISC PROTRUSION [None]
  - LIGAMENT SPRAIN [None]
  - LIMB DISCOMFORT [None]
  - MUSCULOSKELETAL DISORDER [None]
  - MYALGIA [None]
  - MYELOPATHY [None]
  - MYOCARDIAL INFARCTION [None]
  - PAIN IN EXTREMITY [None]
  - PHARYNGITIS [None]
  - RASH PRURITIC [None]
  - SCIATICA [None]
  - SINUSITIS [None]
  - UPPER RESPIRATORY TRACT INFECTION [None]
  - URTICARIA GENERALISED [None]
  - UTERINE LEIOMYOMA [None]
  - VIRAL SINUSITIS [None]
  - WRIST FRACTURE [None]
